FAERS Safety Report 5188564-4 (Version None)
Quarter: 2006Q4

REPORT INFORMATION
  Report Type: 
  Country: None (occurrence: None)
  Receive Date: 20061221
  Receipt Date: 20061215
  Transmission Date: 20070319
  Serious: Yes (Other)
  Sender: FDA-Public Use
  Company Number: US-JNJFOC-20061204739

PATIENT
  Sex: Female

DRUGS (2)
  1. TOPAMAX [Suspect]
     Indication: MIGRAINE PROPHYLAXIS
     Route: 048
  2. SINGULAIR [Concomitant]
     Indication: SINUS CONGESTION

REACTIONS (2)
  - NEPHROLITHIASIS [None]
  - RENAL IMPAIRMENT [None]
